FAERS Safety Report 24706758 (Version 2)
Quarter: 2025Q1

REPORT INFORMATION
  Report Type: Spontaneous
  Country: IN (occurrence: IN)
  Receive Date: 20241206
  Receipt Date: 20250106
  Transmission Date: 20250408
  Serious: Yes (Other)
  Sender: PFIZER
  Company Number: IN-PFIZER INC-PV202200128264

PATIENT
  Age: 72 Year
  Sex: Female

DRUGS (23)
  1. PALBOCICLIB [Suspect]
     Active Substance: PALBOCICLIB
     Indication: Breast cancer metastatic
     Dosage: 100 MG, 1X/DAY
     Route: 048
     Dates: start: 202210
  2. PALBOCICLIB [Suspect]
     Active Substance: PALBOCICLIB
     Route: 048
     Dates: start: 202211
  3. PALBOCICLIB [Suspect]
     Active Substance: PALBOCICLIB
     Dosage: 100 MG, 1X/DAY
     Route: 048
  4. PALBOCICLIB [Suspect]
     Active Substance: PALBOCICLIB
     Route: 048
     Dates: start: 20240603
  5. PALBOCICLIB [Suspect]
     Active Substance: PALBOCICLIB
     Route: 048
     Dates: start: 20240804
  6. PALBOCICLIB [Suspect]
     Active Substance: PALBOCICLIB
     Dosage: 100 MG, 1X/DAY (ONCE DAILY)
     Route: 048
     Dates: start: 2024
  7. PALBOCICLIB [Suspect]
     Active Substance: PALBOCICLIB
  8. FULVESTRANT [Concomitant]
     Active Substance: FULVESTRANT
     Dosage: 500 MG, MONTHLY
     Route: 030
     Dates: start: 202411
  9. ZOLEDRONIC ACID [Concomitant]
     Active Substance: ZOLEDRONIC ACID
     Route: 042
  10. ZOLEDRONIC ACID [Concomitant]
     Active Substance: ZOLEDRONIC ACID
     Dosage: 4 MG, MONTHLY (ON DAY 1)
     Route: 042
     Dates: start: 20240603
  11. AROMASIN [Concomitant]
     Active Substance: EXEMESTANE
     Dosage: 25 MG, 1X/DAY
     Dates: start: 20240603
  12. NEUKINE [Concomitant]
     Route: 058
  13. DEXORANGE [Concomitant]
     Dosage: 10 ML, 2X/DAY
  14. DEXORANGE [Concomitant]
     Dosage: 10 ML, 3 TIMES
  15. EFCORLIN [HYDROCORTISONE HYDROGEN SUCCINATE] [Concomitant]
  16. PHENIRAMINE [Concomitant]
     Active Substance: PHENIRAMINE
  17. SODIUM CHLORIDE [Concomitant]
     Active Substance: SODIUM CHLORIDE
     Route: 042
  18. GRANISET [Concomitant]
     Dosage: 1 MG, 2X/DAY (1-0-1, 30 MIN BEFORE MEALS X 5 DAYS)
  19. CAMPHOR\GLYCERIN\MENTHOL\ZINC OXIDE [Concomitant]
     Active Substance: CAMPHOR\GLYCERIN\MENTHOL\ZINC OXIDE
     Dosage: 40 MG, 2X/DAY (1-0-1, 30 MIN BEFORE MEALS X 5 DAYS)
  20. ZOLEDRONIC ACID [Concomitant]
     Active Substance: ZOLEDRONIC ACID
     Route: 042
  21. MUCAINE [ALUMINIUM HYDROXIDE GEL;MAGNESIUM HYDROXIDE;OXETACAINE] [Concomitant]
     Dosage: UNK, 2X/DAY (2 TSP)
  22. FLUCONAZOLE [Concomitant]
     Active Substance: FLUCONAZOLE
     Dosage: 150 MG, WEEKLY
  23. ZOLEDRONIC ACID [Concomitant]
     Active Substance: ZOLEDRONIC ACID
     Dosage: 4 MG, MONTHLY
     Dates: start: 202406

REACTIONS (12)
  - Fall [Unknown]
  - Hand fracture [Unknown]
  - Neoplasm progression [Unknown]
  - Eructation [Unknown]
  - Tinnitus [Not Recovered/Not Resolved]
  - Urine abnormality [Unknown]
  - Pain in extremity [Unknown]
  - Blood creatinine increased [Not Recovered/Not Resolved]
  - Dysgeusia [Unknown]
  - Haemoglobin decreased [Not Recovered/Not Resolved]
  - Product prescribing error [Unknown]
  - White blood cell count decreased [Recovering/Resolving]

NARRATIVE: CASE EVENT DATE: 20220101
